FAERS Safety Report 5470904-X (Version None)
Quarter: 2007Q3

REPORT INFORMATION
  Report Type: 
  Country: None (occurrence: None)
  Receive Date: 20070925
  Receipt Date: 20070831
  Transmission Date: 20080115
  Serious: Yes (Life-Threatening, Hospitalization, Other)
  Sender: FDA-Public Use
  Company Number: WAES 0705FRA00021

PATIENT
  Age: 66 Year
  Sex: Male

DRUGS (19)
  1. CAP VORINOSTAT 300 MG [Suspect]
     Indication: NON-SMALL CELL LUNG CANCER
     Dosage: 300 MG/DAILY/PO, 300 MG, DAILY, PO ; 300 MG, DAILY, PO
     Route: 048
     Dates: start: 20070502, end: 20070508
  2. CAP VORINOSTAT 300 MG [Suspect]
     Indication: NON-SMALL CELL LUNG CANCER
     Dosage: 300 MG/DAILY/PO, 300 MG, DAILY, PO ; 300 MG, DAILY, PO
     Route: 048
     Dates: start: 20070529, end: 20070604
  3. CAP VORINOSTAT 300 MG [Suspect]
     Indication: NON-SMALL CELL LUNG CANCER
     Dosage: 300 MG/DAILY/PO, 300 MG, DAILY, PO ; 300 MG, DAILY, PO
     Route: 048
     Dates: start: 20070626, end: 20070702
  4. CISPLATIN [Suspect]
     Dosage: IV, 75 MG/M2 MG/UNK; IV,
     Route: 042
     Dates: start: 20070504, end: 20070504
  5. CISPLATIN [Suspect]
     Dosage: IV, 75 MG/M2 MG/UNK; IV,
     Route: 042
     Dates: start: 20070531, end: 20070531
  6. CISPLATIN [Suspect]
     Dosage: IV, 75 MG/M2 MG/UNK; IV,
     Route: 042
     Dates: start: 20070628, end: 20070628
  7. GEMCITABINE [Suspect]
     Indication: NON-SMALL CELL LUNG CANCER
     Dosage: IV, IV, 1250 MG/M2 MG IV, IV, IV
     Route: 042
     Dates: start: 20070504, end: 20070504
  8. GEMCITABINE [Suspect]
     Indication: NON-SMALL CELL LUNG CANCER
     Dosage: IV, IV, 1250 MG/M2 MG IV, IV, IV
     Route: 042
     Dates: start: 20070516, end: 20070516
  9. GEMCITABINE [Suspect]
     Indication: NON-SMALL CELL LUNG CANCER
     Dosage: IV, IV, 1250 MG/M2 MG IV, IV, IV
     Route: 042
     Dates: start: 20070531, end: 20070531
  10. GEMCITABINE [Suspect]
     Indication: NON-SMALL CELL LUNG CANCER
     Dosage: IV, IV, 1250 MG/M2 MG IV, IV, IV
     Route: 042
     Dates: start: 20070628, end: 20070628
  11. GEMCITABINE [Suspect]
     Indication: NON-SMALL CELL LUNG CANCER
     Dosage: IV, IV, 1250 MG/M2 MG IV, IV, IV
     Route: 042
     Dates: start: 20070705, end: 20070705
  12. ZETIA [Concomitant]
  13. BENFLUOREX HYDROCHLORIDE [Concomitant]
  14. CLOPIDOGREL BISULFATE [Concomitant]
  15. DILTIAZEM HYDROCHLORIDE [Concomitant]
  16. NITROGLYCERIN [Concomitant]
  17. PAROXETINE HYDROCHLORIDE [Concomitant]
  18. TRAMADOL HCL [Concomitant]
  19. ZOLPIDEM TARTRATE [Concomitant]

REACTIONS (13)
  - ANOREXIA [None]
  - CARDIAC FAILURE [None]
  - CARDIAC TAMPONADE [None]
  - DEHYDRATION [None]
  - HAEMOGLOBIN DECREASED [None]
  - HYPERGLYCAEMIA [None]
  - PERICARDITIS [None]
  - PULMONARY EMBOLISM [None]
  - RENAL FAILURE [None]
  - RESPIRATORY FAILURE [None]
  - RIGHT VENTRICULAR FAILURE [None]
  - THROMBOCYTOPENIA [None]
  - VENA CAVA THROMBOSIS [None]
